FAERS Safety Report 6046154-5 (Version None)
Quarter: 2009Q1

REPORT INFORMATION
  Report Type: 
  Country: None (occurrence: None)
  Receive Date: 20090122
  Receipt Date: 20090115
  Transmission Date: 20090719
  Serious: Yes (Hospitalization)
  Sender: FDA-Public Use
  Company Number: FR-JNJFOC-20090104362

PATIENT
  Sex: Male

DRUGS (2)
  1. HALDOL [Suspect]
     Indication: ABNORMAL BEHAVIOUR
     Route: 048
  2. XANAX [Concomitant]

REACTIONS (2)
  - NECK PAIN [None]
  - PARAESTHESIA [None]
